FAERS Safety Report 9769181 (Version 2)
Quarter: 2013Q4

REPORT INFORMATION
  Report Type: Spontaneous
  Country: DE (occurrence: DE)
  Receive Date: 20131218
  Receipt Date: 20131218
  Transmission Date: 20140711
  Serious: Yes (Hospitalization, Other)
  Sender: FDA-Public Use
  Company Number: DE-AMGEN-DEUSP2013050628

PATIENT
  Age: 51 Year
  Sex: Female

DRUGS (3)
  1. ENBREL [Suspect]
     Indication: RHEUMATOID ARTHRITIS
     Dosage: 25 MG, 2X/WEEK
     Route: 058
     Dates: start: 20130601, end: 20130716
  2. ENBREL [Suspect]
     Dosage: 25 MG, TWICE WEEKLY
     Route: 065
  3. CORTISONE [Concomitant]
     Dosage: UNK

REACTIONS (3)
  - Hepatic enzyme increased [Not Recovered/Not Resolved]
  - Tuberculosis [Unknown]
  - Joint swelling [Unknown]
